FAERS Safety Report 13340809 (Version 2)
Quarter: 2017Q1

REPORT INFORMATION
  Report Type: Spontaneous
  Country: US (occurrence: US)
  Receive Date: 20170316
  Receipt Date: 20170320
  Transmission Date: 20170428
  Serious: Yes (Other)
  Sender: FDA-Public Use
  Company Number: US-009507513-1703USA006522

PATIENT
  Age: 18 Year
  Sex: Female
  Weight: 180 kg

DRUGS (3)
  1. NEXPLANON [Suspect]
     Active Substance: ETONOGESTREL
     Indication: CONTRACEPTION
     Dosage: 1 IMPLANT EVERY 3 YEAR
     Dates: start: 20160218
  2. IRON (UNSPECIFIED) [Concomitant]
     Active Substance: IRON
  3. ESTROGEN NOS [Concomitant]
     Active Substance: ESTROGENS

REACTIONS (4)
  - Haemorrhage [Unknown]
  - Ovarian cyst [Unknown]
  - Menstruation irregular [Unknown]
  - Migraine [Unknown]
